FAERS Safety Report 22956461 (Version 3)
Quarter: 2024Q1

REPORT INFORMATION
  Report Type: Spontaneous
  Country: US (occurrence: US)
  Receive Date: 20230919
  Receipt Date: 20240104
  Transmission Date: 20240409
  Serious: Yes (Other)
  Sender: FDA-Public Use
  Company Number: US-BRISTOL-MYERS SQUIBB COMPANY-2023-132498

PATIENT
  Age: 77 Year
  Sex: Female

DRUGS (1)
  1. POMALYST [Suspect]
     Active Substance: POMALIDOMIDE
     Indication: Plasma cell myeloma
     Dosage: FREQ-QD FOR 21 DAYS ON 7 DAYS OFF
     Route: 048

REACTIONS (6)
  - Fatigue [Unknown]
  - Nodule [Unknown]
  - Localised infection [Unknown]
  - Oral pain [Unknown]
  - Tongue coated [Unknown]
  - Plasma cell myeloma [Unknown]
